FAERS Safety Report 24689311 (Version 1)
Quarter: 2024Q4

REPORT INFORMATION
  Report Type: Report from Study
  Country: US (occurrence: US)
  Receive Date: 20241203
  Receipt Date: 20241203
  Transmission Date: 20250114
  Serious: Yes (Other)
  Sender: BIOGEN
  Company Number: US-BIOGEN-2024BI01292058

PATIENT
  Sex: Female

DRUGS (1)
  1. VUMERITY [Suspect]
     Active Substance: DIROXIMEL FUMARATE
     Indication: Multiple sclerosis
     Dosage: 1 FOR 7 DAYS, 2 FOR 7 DAY, 3 FOR SEVEN DAY, THEN 4 FOR 7 DAYS
     Route: 050
     Dates: start: 20241030

REACTIONS (3)
  - Diabetes mellitus [Unknown]
  - Gastrointestinal disorder [Unknown]
  - Erythema [Unknown]
